FAERS Safety Report 7068354 (Version 2)
Quarter: 2013Q4

REPORT INFORMATION
  Report Type: Spontaneous
  Country: US (occurrence: None)
  Receive Date: 20090724
  Receipt Date: 20131217
  Transmission Date: 20140711
  Serious: Yes (Hospitalization)
  Sender: FDA-Public Use
  Company Number: 2009S1005607

PATIENT
  Age: 36 Year
  Sex: Female
  Weight: 83.46 kg

DRUGS (12)
  1. FLEET PHOSPHO-SODA [Suspect]
     Indication: COLONOSCOPY
     Dosage: PO
     Route: 048
     Dates: start: 20081117, end: 20081117
  2. AMOXICILLIN (AMOXICILLIN) [Suspect]
  3. LISINOPRIL /HCT (HYDROCHLOROTHIAZIDE, LISINOPRIL) [Concomitant]
  4. CATAPRESS (CLONIDINE) [Concomitant]
  5. PREVACID (LANSOPRAZOLE) [Concomitant]
  6. MIRALAX (MACROGOL) [Concomitant]
  7. DULCOLAX (BISACODYL) [Concomitant]
  8. CARDIZEM (DILTIAZEM) (UNKNOWN) (DILTIAZEM) [Concomitant]
  9. FIORICET (CAFFEINE, BUTALBITAL, PARACETAMOL) [Concomitant]
  10. NORMODYNE (LABETALOL HYDROCHLORIDE) [Concomitant]
  11. PROTONIX (PANTOPRAZOLE SODIUM SESQUIHYDRATE) [Concomitant]
  12. NICOTINE PATCH (NICOTINE POLACRILEX) [Concomitant]

REACTIONS (2)
  - Renal failure [None]
  - Dialysis [None]
